FAERS Safety Report 4399083-7 (Version None)
Quarter: 2004Q2

REPORT INFORMATION
  Report Type: 
  Country: None (occurrence: None)
  Receive Date: 20040621
  Receipt Date: 20031119
  Transmission Date: 20050107
  Serious: Yes (Death)
  Sender: FDA-Public Use
  Company Number: 2012373

PATIENT
  Age: 60 Year
  Sex: Female
  Weight: 63 kg

DRUGS (7)
  1. OXYCODONE HCL [Suspect]
  2. HYDROCODONE BITARTRATE [Suspect]
  3. DIAZEPAM [Suspect]
  4. TEMAZEPAM [Suspect]
  5. ACETAMINOPHEN [Suspect]
  6. OXAZEPAM [Suspect]
  7. CAFFEINE (CAFFEINE) [Suspect]

REACTIONS (1)
  - MULTIPLE DRUG OVERDOSE INTENTIONAL [None]
